FAERS Safety Report 20979444 (Version 1)
Quarter: 2022Q2

REPORT INFORMATION
  Report Type: Spontaneous
  Country: CN (occurrence: CN)
  Receive Date: 20220620
  Receipt Date: 20220620
  Transmission Date: 20220720
  Serious: Yes (Hospitalization, Other)
  Sender: FDA-Public Use
  Company Number: CN-PFIZER INC-202200836991

PATIENT
  Age: 76 Year
  Sex: Female

DRUGS (1)
  1. ENBREL [Suspect]
     Active Substance: ETANERCEPT
     Indication: Rheumatoid arthritis
     Dosage: 25 MG, 2X/WEEK
     Route: 030
     Dates: start: 202203

REACTIONS (6)
  - Myocardial ischaemia [Unknown]
  - Chest discomfort [Unknown]
  - Product storage error [Unknown]
  - Incorrect route of product administration [Unknown]
  - Chest pain [Unknown]
  - Drug ineffective [Unknown]
